FAERS Safety Report 18732838 (Version 1)
Quarter: 2021Q1

REPORT INFORMATION
  Report Type: Spontaneous
  Country: US (occurrence: US)
  Receive Date: 20210112
  Receipt Date: 20210112
  Transmission Date: 20210419
  Serious: No
  Sender: FDA-Public Use
  Company Number: US-009507513-2012USA009992

PATIENT
  Age: 89 Year
  Sex: Female

DRUGS (3)
  1. AMIKACIN. [Concomitant]
     Active Substance: AMIKACIN
  2. PRIMAXIN IV [Suspect]
     Active Substance: CILASTATIN SODIUM\IMIPENEM
     Indication: EYE INFECTION BACTERIAL
     Dosage: UNK
     Route: 042
  3. CLARITHROMYCIN. [Concomitant]
     Active Substance: CLARITHROMYCIN

REACTIONS (1)
  - Product use in unapproved indication [Unknown]
